FAERS Safety Report 10048371 (Version 1)
Quarter: 2014Q1

REPORT INFORMATION
  Report Type: Spontaneous
  Country: PT (occurrence: PT)
  Receive Date: 20140331
  Receipt Date: 20140331
  Transmission Date: 20141002
  Serious: Yes (Hospitalization, Other)
  Sender: FDA-Public Use
  Company Number: PT-GLAXOSMITHKLINE-B0980890A

PATIENT
  Age: 72 Year
  Sex: Male

DRUGS (4)
  1. MELPHALAN [Suspect]
     Indication: PLASMACYTOMA
     Route: 065
  2. DEXAMETHASONE [Suspect]
     Indication: PLASMACYTOMA
     Route: 065
  3. PREDNISOLONE [Suspect]
     Indication: PLASMACYTOMA
     Route: 065
  4. BORTEZOMIB [Suspect]
     Indication: PLASMACYTOMA
     Route: 065

REACTIONS (1)
  - Plasma cell myeloma [Unknown]
